FAERS Safety Report 7105986-2 (Version None)
Quarter: 2010Q4

REPORT INFORMATION
  Report Type: 
  Country: None (occurrence: None)
  Receive Date: 20101116
  Receipt Date: 20101109
  Transmission Date: 20110411
  Serious: Yes (Hospitalization)
  Sender: FDA-Public Use
  Company Number: JP-BAYER-201013856BYL

PATIENT
  Age: 70 Year
  Sex: Male
  Weight: 67 kg

DRUGS (9)
  1. NEXAVAR [Suspect]
     Indication: HEPATIC NEOPLASM MALIGNANT
     Dosage: TOTAL DAILY DOSE: 400 MG  UNIT DOSE: 200 MG
     Route: 048
     Dates: start: 20100713, end: 20101005
  2. LASIX [Concomitant]
     Indication: ASCITES
     Dosage: UNIT DOSE: 20 MG
     Route: 048
     Dates: start: 20100617, end: 20101005
  3. ALDACTONE [Concomitant]
     Indication: ASCITES
     Dosage: UNIT DOSE: 25 MG
     Route: 048
     Dates: start: 20100617
  4. ZYLORIC [Concomitant]
     Indication: HYPERURICAEMIA
     Dosage: UNIT DOSE: 100 MG
     Route: 048
     Dates: start: 20100720, end: 20101005
  5. OMEPRAL [Concomitant]
     Indication: GASTRITIS
     Dosage: UNIT DOSE: 10 MG
     Route: 048
     Dates: start: 20100510
  6. ACTOS [Concomitant]
     Indication: DIABETES MELLITUS
     Dosage: UNIT DOSE: 15 MG
     Route: 048
     Dates: start: 20100612, end: 20101005
  7. LIVACT [Concomitant]
     Indication: HYPOPROTEINAEMIA
     Dosage: UNIT DOSE: 4.15 G
     Route: 048
     Dates: start: 20100625
  8. MUCOSTA [Concomitant]
     Indication: GASTRITIS
     Dosage: UNIT DOSE: 100 MG
     Route: 048
     Dates: start: 20100625, end: 20101005
  9. URSO 250 [Concomitant]
     Indication: HEPATIC CIRRHOSIS
     Dosage: UNIT DOSE: 100 MG
     Route: 048
     Dates: start: 20050901

REACTIONS (3)
  - DYSPHONIA [None]
  - HEPATIC ENCEPHALOPATHY [None]
  - RASH [None]
